FAERS Safety Report 6471002-9 (Version None)
Quarter: 2009Q4

REPORT INFORMATION
  Report Type: 
  Country: None (occurrence: None)
  Receive Date: 20091203
  Receipt Date: 20080104
  Transmission Date: 20100525
  Serious: Yes (Hospitalization)
  Sender: FDA-Public Use
  Company Number: FR-ELI_LILLY_AND_COMPANY-FR200801000818

PATIENT
  Sex: Female

DRUGS (6)
  1. GEMZAR [Suspect]
     Indication: PANCREATIC CARCINOMA METASTATIC
     Dosage: 1800 MG, WEEKLY (1/W)
     Route: 042
     Dates: start: 20070813, end: 20070917
  2. GEMZAR [Suspect]
     Dosage: 1500 MG, OTHER
     Route: 042
     Dates: start: 20070924, end: 20070924
  3. GEMZAR [Suspect]
     Dosage: 1700 MG, WEEKLY (1/W)
     Route: 042
     Dates: start: 20071008, end: 20071015
  4. EUPANTOL [Concomitant]
     Dosage: UNK, UNKNOWN
     Route: 065
     Dates: start: 20070901
  5. LASILIX [Concomitant]
     Dosage: UNK, UNKNOWN
     Route: 065
     Dates: start: 20070901
  6. SPIRONOLACTONE [Concomitant]
     Dosage: UNK, UNKNOWN
     Route: 065
     Dates: start: 20070901

REACTIONS (4)
  - ACUTE PULMONARY OEDEMA [None]
  - HAEMOLYTIC URAEMIC SYNDROME [None]
  - LEFT VENTRICULAR FAILURE [None]
  - THROMBOCYTOPENIA [None]
